FAERS Safety Report 17943285 (Version 3)
Quarter: 2021Q3

REPORT INFORMATION
  Report Type: Spontaneous
  Country: US (occurrence: US)
  Receive Date: 20200625
  Receipt Date: 20210714
  Transmission Date: 20211014
  Serious: No
  Sender: FDA-Public Use
  Company Number: US-PFIZER INC-2020244199

PATIENT
  Age: 86 Year
  Sex: Female

DRUGS (1)
  1. XELJANZ [Suspect]
     Active Substance: TOFACITINIB CITRATE
     Dosage: 5 MG

REACTIONS (7)
  - Gait disturbance [Unknown]
  - Scoliosis [Unknown]
  - Memory impairment [Unknown]
  - Fall [Unknown]
  - Skin laceration [Unknown]
  - Malaise [Unknown]
  - Lip injury [Unknown]
